FAERS Safety Report 10580154 (Version 1)
Quarter: 2014Q4

REPORT INFORMATION
  Report Type: Spontaneous
  Country: DE (occurrence: DE)
  Receive Date: 20141112
  Receipt Date: 20141112
  Transmission Date: 20150529
  Serious: Yes (Other)
  Sender: FDA-Public Use
  Company Number: GXKR2014DE004099

PATIENT
  Sex: Male

DRUGS (3)
  1. TORASEMID [Concomitant]
     Active Substance: TORSEMIDE
  2. METOPROLOLSUCCINAT 1A PHARMA [Suspect]
     Active Substance: METOPROLOL SUCCINATE
     Route: 048
  3. RANITIDIN [Concomitant]
     Active Substance: RANITIDINE HYDROCHLORIDE

REACTIONS (7)
  - Headache [Unknown]
  - Asthenia [Unknown]
  - Limb discomfort [Unknown]
  - Palpitations [Unknown]
  - Dyspnoea [Unknown]
  - Syncope [Unknown]
  - Nausea [Unknown]
